FAERS Safety Report 8228076-4 (Version None)
Quarter: 2012Q1

REPORT INFORMATION
  Report Type: 
  Country: None (occurrence: None)
  Receive Date: 20120322
  Receipt Date: 20120106
  Transmission Date: 20120608
  Serious: No
  Sender: FDA-Public Use
  Company Number: US-BRISTOL-MYERS SQUIBB COMPANY-16329096

PATIENT
  Age: 37 Year
  Sex: Male
  Weight: 68 kg

DRUGS (2)
  1. ERBITUX [Suspect]
     Indication: COLON CANCER STAGE IV
     Dosage: NO OF TREATMENTS:OVER 30INCREASED FROM 668 TO 890 MG
     Route: 042
  2. FLUOROURACIL [Suspect]

REACTIONS (1)
  - SKIN FISSURES [None]
